FAERS Safety Report 12333976 (Version 1)
Quarter: 2016Q2

REPORT INFORMATION
  Report Type: Spontaneous
  Country: US (occurrence: US)
  Receive Date: 20160504
  Receipt Date: 20160504
  Transmission Date: 20160815
  Serious: No
  Sender: FDA-Public Use
  Company Number: US-ROCHE-1709702

PATIENT
  Age: 88 Year
  Sex: Male

DRUGS (2)
  1. ESBRIET [Suspect]
     Active Substance: PIRFENIDONE
     Dosage: 6 CAPSULES PER DAY
     Route: 065
  2. ESBRIET [Suspect]
     Active Substance: PIRFENIDONE
     Indication: IDIOPATHIC PULMONARY FIBROSIS
     Dosage: 9 CAPSULES PER DAY
     Route: 065

REACTIONS (3)
  - Decreased appetite [Unknown]
  - Dyspepsia [Unknown]
  - Oesophageal spasm [Unknown]
